FAERS Safety Report 7014296-3 (Version None)
Quarter: 2010Q3

REPORT INFORMATION
  Report Type: 
  Country: None (occurrence: None)
  Receive Date: 20100924
  Receipt Date: 20100924
  Transmission Date: 20110219
  Serious: Yes (Death, Hospitalization)
  Sender: FDA-Public Use
  Company Number: None

PATIENT
  Sex: Female
  Weight: 81.6475 kg

DRUGS (2)
  1. SORAFENIB 200 MG TABLETS [Suspect]
     Indication: PANCREATIC CARCINOMA
     Dosage: 400 MG PO BID
     Route: 048
     Dates: start: 20100719, end: 20100818
  2. ERLOTINIB HYDROCHLORIDE [Suspect]
     Indication: PANCREATIC CARCINOMA
     Dosage: 150 MG PO QD
     Route: 048
     Dates: start: 20100719, end: 20100818

REACTIONS (3)
  - ACUTE RESPIRATORY FAILURE [None]
  - HYPOXIA [None]
  - LUNG INFILTRATION [None]
